FAERS Safety Report 5206465-X (Version None)
Quarter: 2007Q1

REPORT INFORMATION
  Report Type: 
  Country: None (occurrence: None)
  Receive Date: 20070111
  Receipt Date: 20070104
  Transmission Date: 20070707
  Serious: Yes (Other)
  Sender: FDA-Public Use
  Company Number: US-PFIZER INC-2007002308

PATIENT
  Sex: Female
  Weight: 74.8 kg

DRUGS (2)
  1. CELEBREX [Suspect]
     Indication: PAIN
  2. NEURONTIN [Suspect]
     Indication: BACK DISORDER

REACTIONS (7)
  - BACK DISORDER [None]
  - IMMOBILE [None]
  - IMPAIRED WORK ABILITY [None]
  - KNEE OPERATION [None]
  - MUSCULOSKELETAL STIFFNESS [None]
  - PAIN [None]
  - SHOULDER OPERATION [None]
